FAERS Safety Report 9257078 (Version 1)
Quarter: 2013Q2

REPORT INFORMATION
  Report Type: Spontaneous
  Country: US (occurrence: None)
  Receive Date: 20130424
  Receipt Date: 20130424
  Transmission Date: 20140414
  Serious: No
  Sender: FDA-Public Use
  Company Number: None

PATIENT
  Age: 86 None
  Sex: Male
  Weight: 76.66 kg

DRUGS (1)
  1. ALPHAGAN [Suspect]
     Indication: GLAUCOMA
     Route: 047
     Dates: start: 20130412

REACTIONS (1)
  - Syncope [None]
